FAERS Safety Report 4496707-0 (Version None)
Quarter: 2004Q4

REPORT INFORMATION
  Report Type: 
  Country: None (occurrence: None)
  Receive Date: 20040923
  Receipt Date: 20040809
  Transmission Date: 20050328
  Serious: Yes (Hospitalization)
  Sender: FDA-Public Use
  Company Number: WAES 0408USA00779

PATIENT
  Age: 65 Year
  Sex: Male

DRUGS (5)
  1. INVANZ [Suspect]
     Indication: CELLULITIS
     Dosage: 1 GM/DAILY/IV
     Route: 042
  2. COZAAR [Concomitant]
  3. ATENOLOL [Concomitant]
  4. HYDROCHLOROTHIAZIDE [Concomitant]
  5. RANITIDINE [Concomitant]

REACTIONS (1)
  - HYPOTENSION [None]
